FAERS Safety Report 5412156-2 (Version None)
Quarter: 2007Q3

REPORT INFORMATION
  Report Type: 
  Country: None (occurrence: None)
  Receive Date: 20070713
  Receipt Date: 20070511
  Transmission Date: 20080115
  Serious: No
  Sender: FDA-Public Use
  Company Number: 2007SP001760

PATIENT
  Age: 59 Year
  Sex: Male
  Weight: 80.7403 kg

DRUGS (3)
  1. LUNESTA [Suspect]
     Indication: INSOMNIA
     Dosage: 1 MG 1X ORAL
     Route: 048
     Dates: start: 20070402, end: 20070402
  2. LUNESTA [Suspect]
     Indication: INSOMNIA
     Dosage: 1 MG 1X ORAL
     Route: 048
     Dates: start: 20070406, end: 20070406
  3. MULTIVITAMIN [Concomitant]

REACTIONS (3)
  - DIARRHOEA [None]
  - DRY MOUTH [None]
  - DYSGEUSIA [None]
